FAERS Safety Report 7408524-X (Version None)
Quarter: 2011Q2

REPORT INFORMATION
  Report Type: 
  Country: None (occurrence: None)
  Receive Date: 20110412
  Receipt Date: 20110401
  Transmission Date: 20111010
  Serious: Yes (Other)
  Sender: FDA-Public Use
  Company Number: US-SANOFI-AVENTIS-2011SA020641

PATIENT
  Sex: Female

DRUGS (1)
  1. MULTAQ [Suspect]
     Route: 065
     Dates: start: 20100101

REACTIONS (4)
  - FAECES PALE [None]
  - CHROMATURIA [None]
  - BILE DUCT OBSTRUCTION [None]
  - ABDOMINAL PAIN [None]
